FAERS Safety Report 4610104-6 (Version None)
Quarter: 2005Q1

REPORT INFORMATION
  Report Type: 
  Country: None (occurrence: None)
  Receive Date: 20050314
  Receipt Date: 20040712
  Transmission Date: 20050727
  Serious: Yes (Hospitalization)
  Sender: FDA-Public Use
  Company Number: 8460

PATIENT
  Age: 54 Year
  Sex: Male

DRUGS (7)
  1. AMIODARONE [Suspect]
     Indication: RENAL TRANSPLANT
     Dosage: 200 MG
     Route: 048
     Dates: start: 19991201, end: 20021106
  2. SIROLIMUS [Suspect]
     Indication: RENAL TRANSPLANT
     Dosage: 2 MG
     Route: 048
     Dates: start: 20010819, end: 20021106
  3. ATORVASTATIN CALCIUM [Concomitant]
  4. COTRIM [Concomitant]
  5. CYCLOSPORINE [Concomitant]
  6. PREDNISOLONE [Concomitant]
  7. SODIUM BICARBONATE [Concomitant]

REACTIONS (4)
  - LUNG CONSOLIDATION [None]
  - MALAISE [None]
  - PNEUMONITIS [None]
  - WEIGHT DECREASED [None]
